FAERS Safety Report 7932737-1 (Version None)
Quarter: 2011Q4

REPORT INFORMATION
  Report Type: 
  Country: None (occurrence: None)
  Receive Date: 20111122
  Receipt Date: 20111117
  Transmission Date: 20120403
  Serious: Yes (Hospitalization, Other)
  Sender: FDA-Public Use
  Company Number: US-AMGEN-USASP2011044104

PATIENT
  Age: 74 Year
  Sex: Female
  Weight: 72.109 kg

DRUGS (6)
  1. TAXOL [Concomitant]
     Dosage: 97 MG, Q3WK
  2. NEUPOGEN [Suspect]
     Indication: NEUTROPENIA
     Dosage: 300 MUG, AFTER CHEMO
     Route: 058
     Dates: start: 20110416, end: 20110918
  3. DOXIL [Suspect]
     Indication: OVARIAN CANCER
     Dosage: 71 MG, PER CHEMO REGIM
     Route: 042
     Dates: start: 20110222, end: 20110809
  4. GEMZAR [Concomitant]
     Indication: OVARIAN CANCER RECURRENT
     Dosage: 178 MG, PER CHEMO REGIM
     Route: 042
     Dates: end: 20101228
  5. CARBOPLATIN [Concomitant]
     Indication: OVARIAN CANCER RECURRENT
     Dosage: 270 MG, Q3WK
     Route: 042
     Dates: end: 20101228
  6. ANTINEOPLASTIC AGENTS [Concomitant]
     Indication: OVARIAN CANCER

REACTIONS (4)
  - TOOTH ABSCESS [None]
  - TEMPOROMANDIBULAR JOINT SYNDROME [None]
  - PYREXIA [None]
  - ATELECTASIS [None]
